FAERS Safety Report 18807478 (Version 1)
Quarter: 2021Q1

REPORT INFORMATION
  Report Type: Spontaneous
  Country: US (occurrence: US)
  Receive Date: 20210128
  Receipt Date: 20210128
  Transmission Date: 20210419
  Serious: Yes (Hospitalization)
  Sender: FDA-Public Use
  Company Number: None

PATIENT
  Sex: Male

DRUGS (8)
  1. BREO ELIPHANH [Concomitant]
  2. ASPIRIN. [Suspect]
     Active Substance: ASPIRIN
  3. AMLODIPINE [Suspect]
     Active Substance: AMLODIPINE BESYLATE
  4. MEMSNTINE [Concomitant]
  5. ESBRIET [Suspect]
     Active Substance: PIRFENIDONE
     Indication: IDIOPATHIC PULMONARY FIBROSIS
     Route: 048
     Dates: start: 20200310
  6. PRAVASTATIN. [Suspect]
     Active Substance: PRAVASTATIN
  7. VITAMIN B12 [Suspect]
     Active Substance: CYANOCOBALAMIN
  8. VITAMIN D [Suspect]
     Active Substance: VITAMIN D NOS

REACTIONS (2)
  - Urinary tract infection [None]
  - Nephrolithiasis [None]
